FAERS Safety Report 4902526-0 (Version None)
Quarter: 2006Q1

REPORT INFORMATION
  Report Type: 
  Country: None (occurrence: None)
  Receive Date: 20060202
  Receipt Date: 20060123
  Transmission Date: 20060701
  Serious: Yes (Hospitalization, Disabling)
  Sender: FDA-Public Use
  Company Number: 2006-137753-NL

PATIENT
  Age: 79 Year
  Sex: Female

DRUGS (7)
  1. MIRTAZAPINE [Suspect]
     Indication: DEPRESSION
     Dosage: 15 MG
     Route: 048
     Dates: start: 20051213
  2. AMISULPRIDE [Concomitant]
  3. DOXAZOSIN [Concomitant]
  4. ACETYLSALICYLIC ACID SRT [Concomitant]
  5. VALSARTAN [Concomitant]
  6. LANSOPRAZOLE [Concomitant]
  7. METFORMIN HCL [Concomitant]

REACTIONS (2)
  - DYSKINESIA [None]
  - TARDIVE DYSKINESIA [None]
